FAERS Safety Report 8427809-1 (Version None)
Quarter: 2012Q2

REPORT INFORMATION
  Report Type: 
  Country: None (occurrence: None)
  Receive Date: 20120611
  Receipt Date: 20120605
  Transmission Date: 20120825
  Serious: Yes (Other)
  Sender: FDA-Public Use
  Company Number: AT-PFIZER INC-2012135689

PATIENT
  Age: 78 Year
  Sex: Female

DRUGS (3)
  1. URIVESC RETARD [Concomitant]
     Dosage: 60 MG
  2. LYRICA [Suspect]
     Dosage: 75 MG DAILY (50 MG IN THE MORNINGS AND 25 MG IN THE EVENINGS)
     Dates: start: 20120301
  3. INKONTAN [Concomitant]
     Dosage: 60 MG

REACTIONS (4)
  - INCONTINENCE [None]
  - DRUG INEFFECTIVE [None]
  - BLADDER IRRITATION [None]
  - CONSTIPATION [None]
